FAERS Safety Report 9515203 (Version 1)
Quarter: 2013Q1

REPORT INFORMATION
  Report Type: Spontaneous
  Country: US (occurrence: None)
  Receive Date: 20130305
  Receipt Date: 20130305
  Transmission Date: 20140127
  Serious: Yes (Other)
  Sender: FDA-Public Use
  Company Number: 163-21880-12122692

PATIENT
  Sex: Female

DRUGS (8)
  1. REVLIMID [Suspect]
     Indication: PLASMA CELL MYELOMA
     Dosage: 25 MG, 21 IN 21 D, PO
     Dates: start: 20120725
  2. ALBUTEROL SULFATE (SALBUTAMOL SULFATE) [Concomitant]
  3. ASPIRIN CHILDRENS (ACETYLSALICYLIC ACID) (UNKNOWN) [Concomitant]
  4. BUDESONIDE (BUDESONIDE) (UNKNOWN) [Concomitant]
  5. CALCIUM 600 (UNKNOWN) [Concomitant]
  6. DEPAKOTE (VALPROATE SEMISODIUM) (UNKNOWN) [Concomitant]
  7. DILAUDID (HYDROMORPHONE HYDROCHLORIDE) (UNKNOWN) [Concomitant]
  8. FUROSEMIDE (FUROSEMIDE) (UNKNOWN) [Concomitant]

REACTIONS (1)
  - Thrombosis [None]
